FAERS Safety Report 9498063 (Version 1)
Quarter: 2013Q3

REPORT INFORMATION
  Report Type: Report from Study
  Country: AU (occurrence: AU)
  Receive Date: 20130904
  Receipt Date: 20130904
  Transmission Date: 20140515
  Serious: Yes (Hospitalization)
  Sender: FDA-Public Use
  Company Number: AU-CELGENEUS-008-CCAZA-13083234

PATIENT
  Age: 76 Year
  Sex: Female
  Weight: 52.4 kg

DRUGS (10)
  1. AZACITIDINE INJECTABLE [Suspect]
     Indication: ACUTE MYELOID LEUKAEMIA
     Dosage: 75 MILLIGRAM/SQ. METER
     Route: 058
     Dates: start: 20121011, end: 20121017
  2. AZACITIDINE INJECTABLE [Suspect]
     Dosage: 75 MILLIGRAM/SQ. METER
     Route: 058
     Dates: start: 20130802, end: 20130808
  3. FAMCICLOVIR [Concomitant]
     Indication: ANTIVIRAL PROPHYLAXIS
     Dosage: 500 MILLIGRAM
     Route: 048
     Dates: start: 20130207
  4. TROPISETRON [Concomitant]
     Indication: NAUSEA
     Route: 048
     Dates: start: 20121011
  5. DOMPERIDONE [Concomitant]
     Indication: NAUSEA
     Route: 048
     Dates: start: 20121207
  6. SLOW K [Concomitant]
     Indication: HYPOKALAEMIA
     Dosage: 2400 MILLIGRAM
     Route: 048
     Dates: start: 20130319
  7. OESTRADIOL [Concomitant]
     Indication: HORMONE REPLACEMENT THERAPY
     Route: 067
     Dates: start: 1989
  8. PANADOL [Concomitant]
     Indication: PAIN
     Dosage: 3990 MILLIGRAM
     Route: 048
     Dates: start: 201305
  9. OSTEO [Concomitant]
     Indication: PAIN
     Dosage: 3990 MILLIGRAM
     Route: 048
     Dates: start: 201305
  10. POSACONAZOLE [Concomitant]
     Indication: ANTIFUNGAL PROPHYLAXIS
     Dosage: 600 MILLIGRAM
     Route: 048
     Dates: start: 20121011

REACTIONS (3)
  - Hyponatraemia [Recovered/Resolved]
  - Abdominal pain [Recovered/Resolved]
  - Dizziness [Recovered/Resolved]
